FAERS Safety Report 6447360-8 (Version None)
Quarter: 2009Q4

REPORT INFORMATION
  Report Type: 
  Country: None (occurrence: None)
  Receive Date: 20091119
  Receipt Date: 20091113
  Transmission Date: 20100525
  Serious: Yes (Hospitalization, Other)
  Sender: FDA-Public Use
  Company Number: US-ELI_LILLY_AND_COMPANY-US200911004618

PATIENT
  Sex: Female

DRUGS (6)
  1. HUMALOG [Suspect]
     Dosage: 20 U, OTHER
     Dates: start: 20080101
  2. LEVOTHYROXINE SODIUM [Concomitant]
     Dosage: 50 MG, UNKNOWN
  3. LEVOTHYROXINE SODIUM [Concomitant]
     Dosage: 75 MG, UNKNOWN
  4. PROZAC [Concomitant]
  5. LANTUS [Concomitant]
     Dosage: 50 U, EACH MORNING
  6. METFORMIN HCL [Concomitant]

REACTIONS (16)
  - BLOOD GLUCOSE INCREASED [None]
  - CRYING [None]
  - DYSSTASIA [None]
  - FALL [None]
  - FEELING ABNORMAL [None]
  - HAND FRACTURE [None]
  - INJECTION SITE PAIN [None]
  - INTERVERTEBRAL DISC PROTRUSION [None]
  - LOWER LIMB FRACTURE [None]
  - NECK PAIN [None]
  - NERVOUSNESS [None]
  - PAIN IN EXTREMITY [None]
  - SENSORY LOSS [None]
  - WEIGHT DECREASED [None]
  - WEIGHT INCREASED [None]
  - WRONG TECHNIQUE IN DRUG USAGE PROCESS [None]
